FAERS Safety Report 4629515-8 (Version None)
Quarter: 2005Q2

REPORT INFORMATION
  Report Type: 
  Country: None (occurrence: None)
  Receive Date: 20050405
  Receipt Date: 20050323
  Transmission Date: 20051028
  Serious: Yes (Death)
  Sender: FDA-Public Use
  Company Number: 2005048600

PATIENT

DRUGS (1)
  1. AZITHROMYCIN [Suspect]
     Indication: ILL-DEFINED DISORDER
     Dosage: 200 MG/5 ML,

REACTIONS (1)
  - DEATH [None]
